FAERS Safety Report 7595407 (Version 2)
Quarter: 2013Q1

REPORT INFORMATION
  Report Type: Spontaneous
  Country: US (occurrence: US)
  Receive Date: 20100920
  Receipt Date: 20130222
  Transmission Date: 20140127
  Serious: Yes (Hospitalization)
  Sender: FDA-Public Use
  Company Number: US-ASTRAZENECA-2010SE16497

PATIENT
  Age: 30 Year
  Sex: Female

DRUGS (3)
  1. SEROQUEL XR [Suspect]
     Indication: BIPOLAR DISORDER
     Route: 048
  2. SEROQUEL XR [Suspect]
     Indication: DEPRESSION
     Route: 048
  3. UNSPECIFIED MEDICATIONS [Suspect]
     Route: 065

REACTIONS (8)
  - Insomnia [Unknown]
  - Hallucination [Unknown]
  - Aphagia [Unknown]
  - Memory impairment [Unknown]
  - Bite [Unknown]
  - Adverse drug reaction [Unknown]
  - Muscle twitching [Unknown]
  - Drug dose omission [Unknown]
